FAERS Safety Report 8776396 (Version 1)
Quarter: 2012Q4

REPORT INFORMATION
  Report Type: 
  Country: DK (occurrence: DK)
  Receive Date: 20120907
  Receipt Date: 20120907
  Transmission Date: 20130627
  Serious: Yes (Other)
  Sender: FDA-Public Use
  Company Number: DK-PFIZER INC-2012217465

PATIENT
  Age: 72 Year
  Sex: Female

DRUGS (4)
  1. MEDROL [Suspect]
     Dosage: Dose: 500 mg daily for 3 days. A total of 8 treatments
     Dates: start: 20100126, end: 20100609
  2. PREDNISOLONE [Suspect]
     Dosage: 2.5 mg, 1x/day
     Dates: start: 20100512, end: 201012
  3. CALCIUM WITH VITAMIN D [Concomitant]
     Dosage: The dose was increased to 2 tablets daily from 09Feb2010
     Dates: start: 201002
  4. METHOTREXATE SODIUM [Concomitant]
     Dates: start: 20100608

REACTIONS (3)
  - Osteoporosis [Not Recovered/Not Resolved]
  - Osteonecrosis [Not Recovered/Not Resolved]
  - Osteopenia [Not Recovered/Not Resolved]
